FAERS Safety Report 17807618 (Version 2)
Quarter: 2020Q3

REPORT INFORMATION
  Report Type: Spontaneous
  Country: US (occurrence: US)
  Receive Date: 20200520
  Receipt Date: 20200720
  Transmission Date: 20201102
  Serious: Yes (Other)
  Sender: FDA-Public Use
  Company Number: US-SA-2020SA127794

PATIENT

DRUGS (26)
  1. PARAPLATIN [Concomitant]
     Active Substance: CARBOPLATIN
     Indication: BREAST CANCER FEMALE
     Dosage: UNK
     Dates: start: 20120308, end: 20120308
  2. HERCEPTIN [Concomitant]
     Active Substance: TRASTUZUMAB
     Indication: BREAST CANCER FEMALE
     Dosage: UNK
     Dates: start: 20120308, end: 20120308
  3. HYDROMORPHONE [Concomitant]
     Active Substance: HYDROMORPHONE
  4. DEXAMETHASONE. [Concomitant]
     Active Substance: DEXAMETHASONE
  5. TAXOTERE [Suspect]
     Active Substance: DOCETAXEL
     Indication: BREAST CANCER FEMALE
     Dosage: 150 MG, Q3W
     Route: 042
     Dates: start: 20120308, end: 20120308
  6. PARAPLATIN [Concomitant]
     Active Substance: CARBOPLATIN
     Dosage: UNK
     Dates: start: 20120510, end: 20120510
  7. LORAZEPAM. [Concomitant]
     Active Substance: LORAZEPAM
  8. SODIUM CHLORIDE. [Concomitant]
     Active Substance: SODIUM CHLORIDE
  9. PEPCID [Concomitant]
     Active Substance: FAMOTIDINE
  10. MEVACOR [Concomitant]
     Active Substance: LOVASTATIN
  11. BENADRYL [Concomitant]
     Active Substance: DIPHENHYDRAMINE HYDROCHLORIDE
  12. NORVASC [Concomitant]
     Active Substance: AMLODIPINE BESYLATE
     Dosage: UNK
  13. PROCHLORPERAZINE. [Concomitant]
     Active Substance: PROCHLORPERAZINE
  14. PALONOSETRON. [Concomitant]
     Active Substance: PALONOSETRON HYDROCHLORIDE
  15. FAMOTIDINE. [Concomitant]
     Active Substance: FAMOTIDINE
  16. ACETAMINOPHEN. [Concomitant]
     Active Substance: ACETAMINOPHEN
  17. PYRIDOXINE [Concomitant]
     Active Substance: PYRIDOXINE
  18. TAXOTERE [Suspect]
     Active Substance: DOCETAXEL
     Dosage: 150 MG, Q3W
     Route: 042
     Dates: start: 20120510, end: 20120510
  19. LEVOTHYROXINE. [Concomitant]
     Active Substance: LEVOTHYROXINE
     Indication: HYPERTHYROIDISM
     Dosage: UNK
     Dates: start: 1980
  20. HERCEPTIN [Concomitant]
     Active Substance: TRASTUZUMAB
     Dosage: UNK
     Dates: start: 20120510, end: 20120510
  21. DIPHENHYDRAMINE. [Concomitant]
     Active Substance: DIPHENHYDRAMINE
  22. NEULASTA [Concomitant]
     Active Substance: PEGFILGRASTIM
  23. DILAUDID [Concomitant]
     Active Substance: HYDROMORPHONE HYDROCHLORIDE
  24. ZANTAC [Concomitant]
     Active Substance: RANITIDINE HYDROCHLORIDE
  25. COUMADIN [Concomitant]
     Active Substance: WARFARIN SODIUM
  26. ZESTORETIC [Concomitant]
     Active Substance: HYDROCHLOROTHIAZIDE\LISINOPRIL

REACTIONS (1)
  - Alopecia [Recovering/Resolving]

NARRATIVE: CASE EVENT DATE: 20120329
